FAERS Safety Report 17870284 (Version 1)
Quarter: 2020Q2

REPORT INFORMATION
  Report Type: Spontaneous
  Country: US (occurrence: US)
  Receive Date: 20200605
  Receipt Date: 20200605
  Transmission Date: 20200714
  Serious: Yes (Other)
  Sender: FDA-Public Use
  Company Number: None

PATIENT
  Age: 41 Year
  Sex: Male
  Weight: 85.5 kg

DRUGS (7)
  1. CELEXA [Concomitant]
     Active Substance: CITALOPRAM HYDROBROMIDE
  2. PROPECIA [Concomitant]
     Active Substance: FINASTERIDE
  3. NURTEC ODT [Concomitant]
     Active Substance: RIMEGEPANT SULFATE
  4. AIMOVIG [Suspect]
     Active Substance: ERENUMAB-AOOE
     Indication: MIGRAINE
     Dosage: ?          QUANTITY:1 INJECTION(S);OTHER FREQUENCY:ONCE PER MONTH;?
     Route: 058
     Dates: start: 20200605, end: 20200605
  5. MODAFINIL. [Concomitant]
     Active Substance: MODAFINIL
  6. MULTI VITAMIN [Concomitant]
     Active Substance: VITAMINS
  7. TRAZODONE [Concomitant]
     Active Substance: TRAZODONE HYDROCHLORIDE

REACTIONS (9)
  - Dizziness [None]
  - Chest discomfort [None]
  - Hypoaesthesia oral [None]
  - Cold sweat [None]
  - Tooth disorder [None]
  - Palpitations [None]
  - Influenza like illness [None]
  - Blood pressure increased [None]
  - Visual impairment [None]

NARRATIVE: CASE EVENT DATE: 20200605
